FAERS Safety Report 7953238 (Version 4)
Quarter: 2014Q2

REPORT INFORMATION
  Report Type: Spontaneous
  Country: US (occurrence: US)
  Receive Date: 20110520
  Receipt Date: 20140501
  Transmission Date: 20141212
  Serious: Yes (Hospitalization, Other)
  Sender: FDA-Public Use
  Company Number: US-BAYER-201041434NA

PATIENT
  Age: 17 Year
  Sex: Female
  Weight: 90.7 kg

DRUGS (3)
  1. YASMIN [Suspect]
     Indication: ACNE
     Dosage: UNK
     Dates: start: 20070115, end: 20100415
  2. YAZ [Suspect]
  3. OCELLA [Suspect]

REACTIONS (7)
  - Nephrolithiasis [None]
  - Calculus urinary [None]
  - Calculus ureteric [None]
  - Hydronephrosis [None]
  - Obstructive uropathy [None]
  - Injury [None]
  - Cholecystitis chronic [None]
